FAERS Safety Report 5495527-8 (Version None)
Quarter: 2007Q4

REPORT INFORMATION
  Report Type: 
  Country: None (occurrence: None)
  Receive Date: 20071018
  Receipt Date: 20061211
  Transmission Date: 20080405
  Serious: Yes (Other)
  Sender: FDA-Public Use
  Company Number: 2005109300

PATIENT
  Age: 12 Year
  Sex: Male

DRUGS (2)
  1. NEURONTIN [Suspect]
     Indication: PAIN
  2. REMERON [Concomitant]

REACTIONS (4)
  - DRUG INEFFECTIVE [None]
  - MAJOR DEPRESSION [None]
  - SUICIDAL IDEATION [None]
  - SUICIDE ATTEMPT [None]
